FAERS Safety Report 21467336 (Version 2)
Quarter: 2022Q4

REPORT INFORMATION
  Report Type: Spontaneous
  Country: US (occurrence: US)
  Receive Date: 20221017
  Receipt Date: 20221121
  Transmission Date: 20230113
  Serious: No
  Sender: FDA-Public Use
  Company Number: US-BRISTOL-MYERS SQUIBB COMPANY-2022-122012

PATIENT
  Age: 54 Year
  Sex: Male

DRUGS (2)
  1. THALOMID [Suspect]
     Active Substance: THALIDOMIDE
     Indication: Plasma cell myeloma
     Route: 048
  2. THALOMID [Suspect]
     Active Substance: THALIDOMIDE
     Dosage: 6 CAPSULES (1200MG) PO QD
     Route: 048

REACTIONS (1)
  - Off label use [Unknown]
